FAERS Safety Report 15155877 (Version 1)
Quarter: 2018Q3

REPORT INFORMATION
  Report Type: Spontaneous
  Country: DE (occurrence: DE)
  Receive Date: 20180717
  Receipt Date: 20180717
  Transmission Date: 20181010
  Serious: Yes (Other)
  Sender: FDA-Public Use
  Company Number: DE-US WORLDMEDS, LLC-STA_00020373

PATIENT
  Age: 71 Year
  Sex: Male

DRUGS (6)
  1. APOMORPHINE HYDROCHLORIDE [Suspect]
     Active Substance: APOMORPHINE HYDROCHLORIDE
     Indication: PARKINSON^S DISEASE
     Dosage: 5 MG/H FROM 7:15 AM TO 10:30 PM. FROM 2008?10?02 5.5 MG/H
     Route: 058
     Dates: start: 20080515
  2. NACOM 100 [Concomitant]
     Indication: PRODUCT USED FOR UNKNOWN INDICATION
  3. LEPONEX [Concomitant]
     Active Substance: CLOZAPINE
     Indication: PRODUCT USED FOR UNKNOWN INDICATION
  4. COMTESS 200 [Concomitant]
     Indication: PRODUCT USED FOR UNKNOWN INDICATION
  5. NACOM RET [Concomitant]
     Indication: PRODUCT USED FOR UNKNOWN INDICATION
  6. ASS 100 [Concomitant]
     Active Substance: ASPIRIN
     Indication: PRODUCT USED FOR UNKNOWN INDICATION

REACTIONS (3)
  - Injection site infection [Recovering/Resolving]
  - Nodule [Unknown]
  - Necrosis [Not Recovered/Not Resolved]

NARRATIVE: CASE EVENT DATE: 200810
